FAERS Safety Report 5134946-6 (Version None)
Quarter: 2006Q4

REPORT INFORMATION
  Report Type: 
  Country: None (occurrence: None)
  Receive Date: 20061025
  Receipt Date: 20061016
  Transmission Date: 20070319
  Serious: Yes (Hospitalization)
  Sender: FDA-Public Use
  Company Number: US-JNJFOC-20061004620

PATIENT
  Age: 43 Year
  Sex: Male

DRUGS (3)
  1. TRAMADOL [Suspect]
     Indication: CARPAL TUNNEL SYNDROME
  2. APAP W/ CODEINE [Suspect]
     Indication: TOOTHACHE
  3. ORAGEL [Suspect]
     Indication: TOOTHACHE

REACTIONS (12)
  - ABNORMAL BEHAVIOUR [None]
  - CONVULSION [None]
  - COUGH [None]
  - DEPRESSED LEVEL OF CONSCIOUSNESS [None]
  - DRUG ABUSER [None]
  - FALL [None]
  - GAIT DISTURBANCE [None]
  - LABILE BLOOD PRESSURE [None]
  - LOSS OF CONSCIOUSNESS [None]
  - MUSCLE CONTRACTIONS INVOLUNTARY [None]
  - POSTURING [None]
  - SNORING [None]
